FAERS Safety Report 8790941 (Version 1)
Quarter: 2012Q4

REPORT INFORMATION
  Report Type: Spontaneous
  Country: US (occurrence: None)
  Receive Date: 20120913
  Receipt Date: 20120913
  Transmission Date: 20130627
  Serious: Yes (Other)
  Sender: FDA-Public Use
  Company Number: None

PATIENT
  Age: 27 Year
  Sex: Male
  Weight: 85.28 kg

DRUGS (1)
  1. CHANTIX [Suspect]
     Indication: TOBACCO USER
     Dosage: starter pack dose po
     Dates: start: 20120904, end: 20120912

REACTIONS (9)
  - Dizziness [None]
  - Somnolence [None]
  - Aggression [None]
  - Verbal abuse [None]
  - Depression [None]
  - Fatigue [None]
  - Nausea [None]
  - Vomiting [None]
  - Feeling abnormal [None]
